FAERS Safety Report 5977427-X (Version None)
Quarter: 2008Q4

REPORT INFORMATION
  Report Type: 
  Country: None (occurrence: None)
  Receive Date: 20081203
  Receipt Date: 20081121
  Transmission Date: 20090506
  Serious: Yes (Hospitalization)
  Sender: FDA-Public Use
  Company Number: ES-CELGENEUS-144-21880-08111190

PATIENT
  Sex: Female

DRUGS (1)
  1. REVLIMID [Suspect]
     Dosage: LOW DOSE
     Route: 048
     Dates: start: 20070101

REACTIONS (1)
  - ATRIOVENTRICULAR BLOCK COMPLETE [None]
